FAERS Safety Report 4276715-5 (Version None)
Quarter: 2004Q1

REPORT INFORMATION
  Report Type: 
  Country: None (occurrence: None)
  Receive Date: 20040120
  Receipt Date: 20040108
  Transmission Date: 20041129
  Serious: Yes (Disabling)
  Sender: FDA-Public Use
  Company Number: FR-JNJFOC-20040101400

PATIENT
  Age: 16 Year
  Sex: Female
  Weight: 50 kg

DRUGS (2)
  1. TOPIRAMATE [Suspect]
     Indication: NERVOUS SYSTEM DISORDER
     Dosage: IN 1 DAY, ORAL
     Route: 048
     Dates: start: 20030901, end: 20031203
  2. PROZAC (TABLETS) FLUOXETINE HYDROCHLORIDE [Concomitant]

REACTIONS (4)
  - DELUSION [None]
  - DELUSIONAL DISORDER, PERSECUTORY TYPE [None]
  - HALLUCINATION, AUDITORY [None]
  - PSYCHOTIC DISORDER [None]
